FAERS Safety Report 4443925-3 (Version None)
Quarter: 2004Q3

REPORT INFORMATION
  Report Type: 
  Country: None (occurrence: None)
  Receive Date: 20040729
  Receipt Date: 20030825
  Transmission Date: 20050211
  Serious: Yes (Death)
  Sender: FDA-Public Use
  Company Number: NSADSS2003022069

PATIENT
  Age: 54 Year
  Sex: Male

DRUGS (3)
  1. RISPERDAL [Suspect]
     Indication: PSYCHOTIC DISORDER
     Dosage: 2 MG, 2 IN 24 HOUR, ORAL
     Route: 048
     Dates: end: 20030301
  2. LITHOBID [Concomitant]
  3. ATIVAN [Concomitant]

REACTIONS (1)
  - COMPLETED SUICIDE [None]
